FAERS Safety Report 9789340 (Version 1)
Quarter: 2013Q4

REPORT INFORMATION
  Report Type: Spontaneous
  Country: DK (occurrence: DK)
  Receive Date: 20131231
  Receipt Date: 20131231
  Transmission Date: 20140711
  Serious: Yes (Other)
  Sender: FDA-Public Use
  Company Number: DK-WATSON-2013-23645

PATIENT
  Age: 57 Year
  Sex: Female
  Weight: 57 kg

DRUGS (2)
  1. RAMIPRIL ACTAVIS [Suspect]
     Indication: THROMBOSIS
     Dosage: 5 MG, BID
     Route: 065
     Dates: start: 20121110, end: 20130818
  2. CARVEDILOL ARROW [Concomitant]
     Indication: THROMBOSIS
     Dosage: UNK
     Route: 065
     Dates: start: 20121110, end: 20130701

REACTIONS (3)
  - Hypersensitivity [Recovering/Resolving]
  - Fatigue [Recovering/Resolving]
  - Malaise [Recovering/Resolving]
